FAERS Safety Report 4849926-5 (Version None)
Quarter: 2005Q4

REPORT INFORMATION
  Report Type: 
  Country: None (occurrence: None)
  Receive Date: 20051115
  Receipt Date: 20050728
  Transmission Date: 20060501
  Serious: Yes (Other)
  Sender: FDA-Public Use
  Company Number: 412424

PATIENT
  Age: 51 Year
  Sex: Male

DRUGS (8)
  1. PEGASYS [Suspect]
     Indication: HEPATITIS C VIRUS
     Dosage: 180 MCG 1 PER WEEK OTHER
     Dates: start: 20030115, end: 20031215
  2. COPEGUS [Suspect]
     Indication: HEPATITIS C VIRUS
     Dosage: 400 MG 2 PER DAY ORAL
     Route: 048
     Dates: start: 20030115, end: 20031215
  3. COSOPT (DORZOLAMIDE HYDROCHLORIDE/TIMOLOL) [Concomitant]
  4. ALPHAGAN [Concomitant]
  5. TRAVATAN [Concomitant]
  6. DYNACIRC [Concomitant]
  7. BENICAR [Concomitant]
  8. RADIOACTIVE IODINE (RADIOACTIVE IODINE NOS) [Concomitant]

REACTIONS (12)
  - AMNESIA [None]
  - BASEDOW'S DISEASE [None]
  - CHEST PAIN [None]
  - COLITIS [None]
  - DEAFNESS [None]
  - DEPRESSION [None]
  - DERMATITIS [None]
  - FATIGUE [None]
  - HYPERTENSION [None]
  - INSOMNIA [None]
  - RETINAL OEDEMA [None]
  - TINNITUS [None]
